FAERS Safety Report 11098768 (Version 2)
Quarter: 2015Q2

REPORT INFORMATION
  Report Type: Spontaneous
  Country: GB (occurrence: GB)
  Receive Date: 20150507
  Receipt Date: 20150527
  Transmission Date: 20150821
  Serious: Yes (Life-Threatening, Hospitalization)
  Sender: FDA-Public Use
  Company Number: GB-TEVA-559966ACC

PATIENT
  Age: 36 Year
  Sex: Female
  Weight: 72.57 kg

DRUGS (2)
  1. CLENIL MODULITE [Suspect]
     Active Substance: BECLOMETHASONE DIPROPIONATE
     Indication: ASTHMA
     Route: 055
     Dates: end: 2015
  2. TEVA SALAMOL METERED DOSE INHALER (MDI) 100 MCG INHALER [Suspect]
     Active Substance: ALBUTEROL
     Indication: ASTHMA
     Dosage: METERED DOSE INHALER
     Route: 055
     Dates: start: 2013, end: 201504

REACTIONS (17)
  - Syncope [Recovering/Resolving]
  - Asthma [Recovering/Resolving]
  - Eczema [Recovering/Resolving]
  - Seizure [Recovering/Resolving]
  - Blood potassium decreased [Recovering/Resolving]
  - Dry mouth [Unknown]
  - Dry skin [Unknown]
  - Peripheral coldness [Unknown]
  - Dyspnoea [Recovering/Resolving]
  - Insomnia [Recovering/Resolving]
  - Palpitations [Recovering/Resolving]
  - Condition aggravated [Recovering/Resolving]
  - Pruritus [Unknown]
  - Cough [Unknown]
  - Chest discomfort [Recovering/Resolving]
  - Dizziness [Recovering/Resolving]
  - Malaise [Recovering/Resolving]
